FAERS Safety Report 5683412-8 (Version None)
Quarter: 2008Q1

REPORT INFORMATION
  Report Type: 
  Country: None (occurrence: None)
  Receive Date: 20080326
  Receipt Date: 20070419
  Transmission Date: 20080703
  Serious: Yes (Hospitalization)
  Sender: FDA-Public Use
  Company Number: MK-6032469

PATIENT
  Age: 72 Year
  Sex: Female

DRUGS (7)
  1. METFORMIN HCL [Suspect]
     Indication: DIABETES MELLITUS
  2. ENALAPRIL MALEATE [Suspect]
     Indication: DRUG USE FOR UNKNOWN INDICATION
  3. SALURES (BENDROFLUMETHAZIDE) [Suspect]
     Indication: DRUG USE FOR UNKNOWN INDICATION
  4. FUROSEMIDE [Suspect]
     Indication: DRUG USE FOR UNKNOWN INDICATION
  5. SIMVASTATIN [Concomitant]
  6. FOLACIN [Concomitant]
  7. DAONIL [Concomitant]

REACTIONS (6)
  - DEHYDRATION [None]
  - DIALYSIS [None]
  - DIARRHOEA [None]
  - LACTIC ACIDOSIS [None]
  - METABOLIC ACIDOSIS [None]
  - RENAL IMPAIRMENT [None]
